FAERS Safety Report 7803831-0 (Version None)
Quarter: 2011Q4

REPORT INFORMATION
  Report Type: 
  Country: None (occurrence: None)
  Receive Date: 20111010
  Receipt Date: 20111006
  Transmission Date: 20120403
  Serious: Yes (Death, Hospitalization)
  Sender: FDA-Public Use
  Company Number: JP-B.I. PHARMACEUTICALS,INC./RIDGEFIELD-2011-BP-23152NB

PATIENT
  Sex: Female
  Weight: 41 kg

DRUGS (6)
  1. LASIX [Concomitant]
     Indication: CARDIAC FAILURE
     Dosage: 20 MG
     Route: 048
     Dates: start: 20110524
  2. CARVEDILOL [Concomitant]
     Indication: CARDIAC FAILURE
     Dosage: 5 MG
     Route: 048
     Dates: start: 20110524
  3. DIGOXIN [Concomitant]
     Indication: CARDIAC FAILURE
     Route: 048
     Dates: start: 20110524
  4. NEUQUINON [Concomitant]
     Indication: CARDIAC FAILURE
     Dosage: 30 MG
     Route: 048
     Dates: start: 20110524
  5. EPADEL S [Concomitant]
     Indication: ARTERIOSCLEROSIS OBLITERANS
     Route: 048
     Dates: start: 20110712
  6. PRADAXA [Suspect]
     Indication: ATRIAL FIBRILLATION
     Dosage: 220 MG
     Route: 048
     Dates: start: 20110614, end: 20110805

REACTIONS (1)
  - CEREBRAL HAEMORRHAGE [None]
